FAERS Safety Report 6262582-7 (Version None)
Quarter: 2009Q3

REPORT INFORMATION
  Report Type: 
  Country: None (occurrence: None)
  Receive Date: 20090709
  Receipt Date: 20090702
  Transmission Date: 20100115
  Serious: Yes (Other)
  Sender: FDA-Public Use
  Company Number: US-ELI_LILLY_AND_COMPANY-US200907001075

PATIENT
  Age: 72 Year
  Sex: Female

DRUGS (4)
  1. HUMULIN 70/30 [Suspect]
  2. HUMALOG [Suspect]
  3. NOVOLOG [Concomitant]
  4. NOVOLIN 70/30 [Concomitant]

REACTIONS (5)
  - AMBLYOPIA [None]
  - ARTHRALGIA [None]
  - CEREBROVASCULAR ACCIDENT [None]
  - JOINT STIFFNESS [None]
  - JOINT SWELLING [None]
